FAERS Safety Report 20080366 (Version 2)
Quarter: 2021Q4

REPORT INFORMATION
  Report Type: Spontaneous
  Country: PL (occurrence: PL)
  Receive Date: 20211117
  Receipt Date: 20211130
  Transmission Date: 20220303
  Serious: Yes (Other)
  Sender: FDA-Public Use
  Company Number: PL-AMGEN-POLSP2021132002

PATIENT
  Age: 63 Year
  Sex: Female

DRUGS (3)
  1. DEXAMETHASONE [Suspect]
     Active Substance: DEXAMETHASONE
     Indication: Plasma cell myeloma
     Dosage: UNK
     Route: 065
     Dates: start: 202107
  2. CARFILZOMIB [Suspect]
     Active Substance: CARFILZOMIB
     Indication: Plasma cell myeloma
     Dosage: 110 MILLIGRAM,110 MILLIGRAM, (70 MG/M2 AS PER BODY SURFACE AREA)
     Route: 065
     Dates: start: 2021
  3. CARFILZOMIB [Suspect]
     Active Substance: CARFILZOMIB
     Dosage: 30 MILLIGRAM,30 MILLIGRAM, (20 MG/M2 AS PER BODY SURFACE AREA)
     Route: 065
     Dates: start: 202107

REACTIONS (2)
  - Platelet count decreased [Unknown]
  - Glomerular filtration rate decreased [Unknown]

NARRATIVE: CASE EVENT DATE: 20210101
